FAERS Safety Report 12704122 (Version 1)
Quarter: 2016Q3

REPORT INFORMATION
  Report Type: Spontaneous
  Country: BR (occurrence: BR)
  Receive Date: 20160831
  Receipt Date: 20160831
  Transmission Date: 20161109
  Serious: Yes (Other)
  Sender: FDA-Public Use
  Company Number: BR-009507513-1608BRA014438

PATIENT
  Age: 39 Year
  Sex: Female
  Weight: 84 kg

DRUGS (8)
  1. LEXAPRO [Suspect]
     Active Substance: ESCITALOPRAM OXALATE
     Indication: ANXIETY
     Dosage: 10 MG, QD
     Route: 048
     Dates: end: 20160527
  2. NUVARING [Suspect]
     Active Substance: ETHINYL ESTRADIOL\ETONOGESTREL
     Dosage: UNK,3 WEEKS WITH THE VAGINAL RING AND ONE WEEK FREE
     Route: 067
     Dates: start: 20160424, end: 20160515
  3. PRISTIQ EXTENDED-RELEASE [Suspect]
     Active Substance: DESVENLAFAXINE SUCCINATE
     Indication: PANIC DISORDER
  4. PRISTIQ EXTENDED-RELEASE [Suspect]
     Active Substance: DESVENLAFAXINE SUCCINATE
     Indication: ANXIETY
     Dosage: UNK
     Dates: start: 2012, end: 201406
  5. NUVARING [Suspect]
     Active Substance: ETHINYL ESTRADIOL\ETONOGESTREL
     Indication: CONTRACEPTION
     Dosage: UNK, 3 WEEKS WITH THE VAGINAL RING AND ONE WEEK FREE
     Dates: start: 2010, end: 20160417
  6. FRONTAL [Suspect]
     Active Substance: ALPRAZOLAM
     Indication: ANXIETY
     Dosage: 1 DF, QD
     Route: 048
     Dates: end: 20160527
  7. RITALIN [Suspect]
     Active Substance: METHYLPHENIDATE HYDROCHLORIDE
     Indication: ANXIETY
     Dosage: 80MG, 2 TABLETS DAILY
     Route: 048
     Dates: end: 20160527
  8. NUVARING [Suspect]
     Active Substance: ETHINYL ESTRADIOL\ETONOGESTREL
     Dosage: UNK,3 WEEKS WITH THE VAGINAL RING AND ONE WEEK FREE
     Route: 067
     Dates: start: 201605, end: 20160527

REACTIONS (12)
  - Pregnancy on contraceptive [Unknown]
  - Dysgraphia [Unknown]
  - Unintended pregnancy [Unknown]
  - Hypothyroidism [Unknown]
  - Disturbance in attention [Unknown]
  - Panic disorder [Not Recovered/Not Resolved]
  - Affective disorder [Not Recovered/Not Resolved]
  - Anxiety [Not Recovered/Not Resolved]
  - Anxiety [Unknown]
  - Reading disorder [Unknown]
  - Insomnia [Not Recovered/Not Resolved]
  - Drug effect decreased [Unknown]

NARRATIVE: CASE EVENT DATE: 2012
